FAERS Safety Report 9688334 (Version 1)
Quarter: 2013Q4

REPORT INFORMATION
  Report Type: Report from Study
  Country: FR (occurrence: FR)
  Receive Date: 20131114
  Receipt Date: 20131114
  Transmission Date: 20140711
  Serious: Yes (Other)
  Sender: FDA-Public Use
  Company Number: PHHO2013FR014735

PATIENT
  Sex: 0

DRUGS (7)
  1. AFINITOR [Suspect]
     Indication: TRANSITIONAL CELL CARCINOMA
     Dosage: 10 MG, QD
     Route: 048
     Dates: start: 20130502, end: 20130514
  2. OXYCONTIN [Concomitant]
     Dosage: 100 MG, BID
  3. PROZAC [Concomitant]
     Dosage: QD
  4. INEXIUM//ESOMEPRAZOLE MAGNESIUM [Concomitant]
     Dosage: 40 MG, QD
  5. LAROXYL [Concomitant]
     Dosage: 25
  6. ZOLPIDEM [Concomitant]
     Dosage: 1/2 TABLET A DAY
  7. SPIRULINA [Concomitant]
     Dosage: 3 DF, QD

REACTIONS (1)
  - Blood albumin decreased [Unknown]
